FAERS Safety Report 6793632-7 (Version None)
Quarter: 2010Q2

REPORT INFORMATION
  Report Type: 
  Country: None (occurrence: None)
  Receive Date: 20100624
  Receipt Date: 20090216
  Transmission Date: 20101027
  Serious: No
  Sender: FDA-Public Use
  Company Number: US-PFIZER INC-2009154528

PATIENT
  Sex: Female
  Weight: 70.295 kg

DRUGS (11)
  1. XALATAN [Suspect]
     Indication: GLAUCOMA
     Dates: start: 20090109, end: 20090110
  2. BUSPIRONE [Concomitant]
  3. AMITIZA [Concomitant]
  4. OMEPRAZOLE [Concomitant]
  5. LEVOTHYROXINE SODIUM [Concomitant]
  6. HYDROCHLOROTHIAZIDE [Concomitant]
  7. RAMIPRIL [Concomitant]
  8. TIZANIDINE [Concomitant]
  9. AMITRIPTYLINE [Concomitant]
  10. METOPROLOL [Concomitant]
  11. LIPITOR [Concomitant]

REACTIONS (1)
  - OCULAR HYPERAEMIA [None]
